FAERS Safety Report 5501302-8 (Version None)
Quarter: 2007Q4

REPORT INFORMATION
  Report Type: 
  Country: None (occurrence: None)
  Receive Date: 20071029
  Receipt Date: 20070716
  Transmission Date: 20080405
  Serious: Yes (Other)
  Sender: FDA-Public Use
  Company Number: AT-GENENTECH-250442

PATIENT
  Age: 87 Year
  Sex: Female

DRUGS (1)
  1. AVASTIN [Suspect]
     Indication: DRUG USE FOR UNKNOWN INDICATION
     Dosage: 2.5 ML, UNK
     Route: 031

REACTIONS (3)
  - ANTERIOR CHAMBER DISORDER [None]
  - VISUAL DISTURBANCE [None]
  - VITREOUS DISORDER [None]
